FAERS Safety Report 8384599-9 (Version None)
Quarter: 2012Q2

REPORT INFORMATION
  Report Type: 
  Country: None (occurrence: None)
  Receive Date: 20120524
  Receipt Date: 20120518
  Transmission Date: 20120825
  Serious: Yes (Hospitalization)
  Sender: FDA-Public Use
  Company Number: MX-B.I. PHARMACEUTICALS,INC./RIDGEFIELD-2012-MX-00146MX

PATIENT
  Age: 71 Year
  Sex: Male
  Weight: 99 kg

DRUGS (4)
  1. AMIODARONA [Concomitant]
     Indication: ATRIAL FIBRILLATION
     Dosage: 400 MG
     Route: 048
     Dates: start: 20120505
  2. PRADAXA [Suspect]
     Indication: CEREBROVASCULAR ACCIDENT PROPHYLAXIS
     Dosage: 300 MG
     Route: 048
     Dates: start: 20120505
  3. ENALAPRIL MALEATE [Concomitant]
     Indication: ENDOTHELIAL DYSFUNCTION
     Dosage: 2.5 MG
     Route: 048
     Dates: start: 20120505
  4. OMEPRAZOLE [Concomitant]
     Indication: DYSPEPSIA
     Dosage: 40 MG
     Route: 048
     Dates: start: 20120505

REACTIONS (1)
  - ATRIAL FIBRILLATION [None]
